FAERS Safety Report 6576984-2 (Version None)
Quarter: 2010Q1

REPORT INFORMATION
  Report Type: 
  Country: None (occurrence: None)
  Receive Date: 20100210
  Receipt Date: 20100204
  Transmission Date: 20100710
  Serious: Yes (Hospitalization)
  Sender: FDA-Public Use
  Company Number: GR-ELI_LILLY_AND_COMPANY-GR201002000346

PATIENT
  Age: 52 Year
  Sex: Male

DRUGS (3)
  1. ZYPADHERA [Suspect]
     Indication: SCHIZOPHRENIA
     Dosage: UNK, UNKNOWN
     Route: 030
  2. ZYPADHERA [Suspect]
     Dosage: 300 MG, UNK
     Route: 030
     Dates: start: 20100129
  3. ALOPERIDIN [Concomitant]
     Dosage: 3 ML, MONTHLY (1/M)
     Route: 065
     Dates: start: 20060101

REACTIONS (10)
  - DELIRIUM [None]
  - DISORIENTATION [None]
  - DIZZINESS [None]
  - DYSARTHRIA [None]
  - DYSPNOEA [None]
  - HEART RATE INCREASED [None]
  - IRRITABILITY [None]
  - LETHARGY [None]
  - SEDATION [None]
  - TONGUE PARALYSIS [None]
